FAERS Safety Report 17905453 (Version 1)
Quarter: 2020Q2

REPORT INFORMATION
  Report Type: Spontaneous
  Country: US (occurrence: US)
  Receive Date: 20200616
  Receipt Date: 20200616
  Transmission Date: 20200714
  Serious: Yes (Hospitalization)
  Sender: FDA-Public Use
  Company Number: None

PATIENT
  Age: 57 Year
  Sex: Male

DRUGS (17)
  1. AMOXICILLIN. [Concomitant]
     Active Substance: AMOXICILLIN
  2. ANTISEPTIC [Concomitant]
     Active Substance: CHLOROXYLENOL
  3. MUPIROCIN. [Concomitant]
     Active Substance: MUPIROCIN
  4. CIPROFLOXACIN. [Concomitant]
     Active Substance: CIPROFLOXACIN
  5. FINASTERIDE. [Concomitant]
     Active Substance: FINASTERIDE
  6. METHYLPRED [Concomitant]
     Active Substance: METHYLPREDNISOLONE
  7. OXYCODONE AND ACETAMINOPHEN [Concomitant]
     Active Substance: ACETAMINOPHEN\OXYCODONE HYDROCHLORIDE
  8. ALEVE [Concomitant]
     Active Substance: NAPROXEN SODIUM
  9. MELOXICAM. [Concomitant]
     Active Substance: MELOXICAM
  10. PREDNISONE. [Concomitant]
     Active Substance: PREDNISONE
  11. VITAMIN D [Concomitant]
     Active Substance: VITAMIN D NOS
  12. GABAPENTIN. [Concomitant]
     Active Substance: GABAPENTIN
  13. ENBREL [Suspect]
     Active Substance: ETANERCEPT
     Indication: PSORIASIS
     Route: 058
     Dates: start: 201803
  14. DIAZEPAM. [Concomitant]
     Active Substance: DIAZEPAM
  15. TRAMADOL HCL [Concomitant]
     Active Substance: TRAMADOL HYDROCHLORIDE
  16. DICLOFENAC [Concomitant]
     Active Substance: DICLOFENAC
  17. DOXYCYCL HYC [Concomitant]

REACTIONS (1)
  - Knee operation [None]

NARRATIVE: CASE EVENT DATE: 20200612
